FAERS Safety Report 9441885 (Version 1)
Quarter: 2013Q3

REPORT INFORMATION
  Report Type: Report from Study
  Country: US (occurrence: US)
  Receive Date: 20130806
  Receipt Date: 20130806
  Transmission Date: 20140515
  Serious: Yes (Hospitalization)
  Sender: FDA-Public Use
  Company Number: US-SHIRE-ALL1-2013-05251

PATIENT
  Sex: Male
  Weight: 35.4 kg

DRUGS (6)
  1. IDURSULFASE [Suspect]
     Indication: MUCOPOLYSACCHARIDOSIS II
     Dosage: 17.7 MG, 1X/WEEK
     Route: 041
     Dates: start: 20081223
  2. PARACETAMOL [Concomitant]
     Indication: PREMEDICATION
     Dosage: 420 MG, 1X/WEEK
     Route: 048
     Dates: start: 20081223
  3. DIPHENHYDRAMINE [Concomitant]
     Indication: PREMEDICATION
     Dosage: 28 MG, 1X/WEEK
     Route: 048
     Dates: start: 20081223
  4. SYMBICORT [Concomitant]
     Indication: EXERCISE TOLERANCE DECREASED
     Dosage: 2 DF (2 PUFFS), 2X/DAY:BID
     Route: 055
     Dates: start: 20080514
  5. LISINOPRIL [Concomitant]
     Indication: INCREASED VENTRICULAR AFTERLOAD
     Dosage: 5 MG, 1X/DAY:QD
     Route: 048
     Dates: start: 2007
  6. ALBUTEROL                          /00139501/ [Concomitant]
     Indication: ASTHMA
     Dosage: UNK, UNKNOWN
     Route: 065
     Dates: start: 2005

REACTIONS (1)
  - Tooth disorder [Unknown]
